FAERS Safety Report 7546348-3 (Version None)
Quarter: 2011Q2

REPORT INFORMATION
  Report Type: 
  Country: None (occurrence: None)
  Receive Date: 20110614
  Receipt Date: 20100116
  Transmission Date: 20111010
  Serious: Yes (Death, Hospitalization, Other)
  Sender: FDA-Public Use
  Company Number: US-BAYER-201011354NA

PATIENT
  Age: 58 Year
  Sex: Female
  Weight: 59 kg

DRUGS (18)
  1. AMIODARONE HCL [Concomitant]
     Dosage: UNK
     Route: 042
     Dates: start: 19981030
  2. VANCOMYCIN [Concomitant]
     Dosage: 500 MG PUMP
     Route: 050
     Dates: start: 19981030
  3. EPINEPHRINE [Concomitant]
     Dosage: UNK
     Route: 042
     Dates: start: 19981030
  4. LIDOCAINE [Concomitant]
     Dosage: UNK
     Route: 042
     Dates: start: 19981030
  5. MIDAZOLAM HCL [Concomitant]
     Dosage: UNK
     Route: 042
     Dates: start: 19981030
  6. TRASYLOL [Suspect]
     Indication: MITRAL VALVE REPAIR
     Dosage: UNK
     Route: 042
     Dates: start: 19981030, end: 19981030
  7. HEPARIN [Concomitant]
     Dosage: PUMP
     Route: 050
     Dates: start: 19981030
  8. PROTAMINE SULFATE [Concomitant]
     Dosage: 30-OCT-1998
     Route: 042
  9. TRASYLOL [Suspect]
     Indication: TRICUSPID VALVE REPAIR
  10. NIFEDIPINE [Concomitant]
     Dosage: 10 MG
     Route: 060
     Dates: start: 19981030
  11. LASIX [Concomitant]
     Dosage: PUMP
     Route: 050
     Dates: start: 19981030
  12. DOPAMINE HCL [Concomitant]
     Dosage: 400 MG
     Route: 042
     Dates: start: 19981030
  13. SYNTHROID [Concomitant]
     Dosage: 0.075 MG, QD
     Route: 048
  14. BILBERRY [Concomitant]
     Dosage: 50 MG, QD
  15. MANNITOL [Concomitant]
     Dosage: PUMP
     Route: 050
     Dates: start: 19981030
  16. HEPARIN [Concomitant]
     Dosage: UNK
     Route: 042
     Dates: start: 19981030
  17. PREMARIN [Concomitant]
     Dosage: 0.625 MG, QD
     Route: 048
  18. AMIODARONE HCL [Concomitant]
     Dosage: PUMP
     Route: 050
     Dates: start: 19981030

REACTIONS (14)
  - DEATH [None]
  - DEPRESSION [None]
  - INJURY [None]
  - UNEVALUABLE EVENT [None]
  - FEAR [None]
  - CARDIAC DISORDER [None]
  - RENAL FAILURE [None]
  - CEREBROVASCULAR ACCIDENT [None]
  - RENAL IMPAIRMENT [None]
  - ANHEDONIA [None]
  - ORGAN FAILURE [None]
  - RENAL INJURY [None]
  - PAIN [None]
  - ANXIETY [None]
